FAERS Safety Report 25352324 (Version 1)
Quarter: 2025Q2

REPORT INFORMATION
  Report Type: Spontaneous
  Country: US (occurrence: None)
  Receive Date: 20250522
  Receipt Date: 20250522
  Transmission Date: 20250717
  Serious: Yes (unspecified)
  Sender: FDA-CTU
  Company Number: None

PATIENT
  Age: 75 Year
  Sex: Female
  Weight: 76.2 kg

DRUGS (1)
  1. RECLAST [Suspect]
     Active Substance: ZOLEDRONIC ACID
     Indication: Osteoporosis
     Route: 041
     Dates: start: 20250505, end: 20250505

REACTIONS (16)
  - Infusion related reaction [None]
  - Arthritis [None]
  - Joint swelling [None]
  - Arthralgia [None]
  - Dysphonia [None]
  - Cough [None]
  - Productive cough [None]
  - Pyrexia [None]
  - Fatigue [None]
  - Fatigue [None]
  - Bladder dilatation [None]
  - Nocturia [None]
  - Blood urine present [None]
  - Withdrawal syndrome [None]
  - Electric shock sensation [None]
  - Adverse drug reaction [None]

NARRATIVE: CASE EVENT DATE: 20250505
